FAERS Safety Report 25701538 (Version 1)
Quarter: 2025Q3

REPORT INFORMATION
  Report Type: Spontaneous
  Country: CN (occurrence: CN)
  Receive Date: 20250819
  Receipt Date: 20250819
  Transmission Date: 20251021
  Serious: Yes (Hospitalization)
  Sender: SANDOZ
  Company Number: CN-002147023-NVSC2023CN179367

PATIENT
  Age: 22 Year
  Sex: Male
  Weight: 65 kg

DRUGS (3)
  1. LEVETIRACETAM [Suspect]
     Active Substance: LEVETIRACETAM
     Indication: Epilepsy
     Dosage: 0.50 G, BID (TABLET)
     Route: 048
     Dates: start: 20230717, end: 20230721
  2. OXCARBAZEPINE [Suspect]
     Active Substance: OXCARBAZEPINE
     Indication: Epilepsy
     Dosage: 0.85 G, QD
     Route: 048
     Dates: start: 20230717, end: 20230720
  3. VALPROATE SODIUM [Suspect]
     Active Substance: VALPROATE SODIUM
     Indication: Epilepsy
     Dosage: 0.50 G, BID
     Route: 048
     Dates: start: 20230717, end: 20230720

REACTIONS (3)
  - Pain [Unknown]
  - Decreased appetite [Unknown]
  - Platelet count decreased [Unknown]

NARRATIVE: CASE EVENT DATE: 20230717
